FAERS Safety Report 4637223-2 (Version None)
Quarter: 2005Q1

REPORT INFORMATION
  Report Type: 
  Country: None (occurrence: None)
  Receive Date: 20050325
  Receipt Date: 20041202
  Transmission Date: 20050727
  Serious: No
  Sender: FDA-Public Use
  Company Number: USA041285071

PATIENT
  Age: 62 Year
  Sex: Female

DRUGS (2)
  1. FORTEO [Suspect]
     Indication: OSTEOPOROSIS
     Dosage: 20 UG/ ONCE DAY
     Dates: start: 20040501, end: 20041116
  2. CALCIUM GLUCONATE [Concomitant]

REACTIONS (1)
  - BLOOD CALCIUM INCREASED [None]
